FAERS Safety Report 10270366 (Version 1)
Quarter: 2014Q2

REPORT INFORMATION
  Report Type: Spontaneous
  Country: IT (occurrence: None)
  Receive Date: 20140626
  Receipt Date: 20140626
  Transmission Date: 20141212
  Serious: Yes (Hospitalization)
  Sender: FDA-Public Use
  Company Number: 2014AP003493

PATIENT
  Age: 56 Year
  Sex: Male

DRUGS (1)
  1. AZITHROMYCIN (AZITHROMYCIN) TABLET [Suspect]
     Indication: ANTIBIOTIC PROPHYLAXIS
     Route: 048
     Dates: start: 20131121, end: 20131122

REACTIONS (1)
  - Purpura [None]
